FAERS Safety Report 4666418-7 (Version None)
Quarter: 2005Q2

REPORT INFORMATION
  Report Type: 
  Country: None (occurrence: None)
  Receive Date: 20050517
  Receipt Date: 20050504
  Transmission Date: 20051028
  Serious: Yes (Disabling)
  Sender: FDA-Public Use
  Company Number: S05-USA-02405-01

PATIENT
  Age: 59 Year
  Sex: Female

DRUGS (6)
  1. LEXAPRO [Suspect]
     Indication: ANXIETY
     Dosage: 5 MG QAM PO
     Route: 048
     Dates: start: 20041201
  2. LEXAPRO [Suspect]
     Indication: DEPRESSION
     Dosage: 5 MG QAM PO
     Route: 048
     Dates: start: 20041201
  3. LEXAPRO [Suspect]
     Indication: ANXIETY
     Dosage: 10 MG QHS PO
     Route: 048
     Dates: start: 20041201
  4. LEXAPRO [Suspect]
     Indication: DEPRESSION
     Dosage: 10 MG QHS PO
     Route: 048
     Dates: start: 20041201
  5. LEVOXYL (LEVOTYHYROXINE SODIUM) [Concomitant]
  6. PREMARIN [Concomitant]

REACTIONS (6)
  - CONNECTIVE TISSUE DISORDER [None]
  - DEPRESSION [None]
  - PARAESTHESIA [None]
  - ROAD TRAFFIC ACCIDENT [None]
  - TINNITUS [None]
  - WHIPLASH INJURY [None]
